FAERS Safety Report 4847959-6 (Version None)
Quarter: 2005Q4

REPORT INFORMATION
  Report Type: 
  Country: None (occurrence: None)
  Receive Date: 20051206
  Receipt Date: 20051123
  Transmission Date: 20060501
  Serious: Yes (Other)
  Sender: FDA-Public Use
  Company Number: US_0411107709

PATIENT
  Age: 34 Year
  Sex: Female
  Weight: 109.1 kg

DRUGS (4)
  1. ZYPREXA ZYDIS [Suspect]
     Indication: PANIC ATTACK
     Dosage: 10 MG, AS NEEDED, ORAL
     Route: 048
     Dates: start: 20030801, end: 20031223
  2. EFFEXOR [Concomitant]
  3. AMBIEN [Concomitant]
  4. KLONOPIN [Concomitant]

REACTIONS (11)
  - AMNESIA [None]
  - DIABETES MELLITUS [None]
  - DIABETIC COMA [None]
  - DIABETIC KETOACIDOSIS [None]
  - HEPATIC STEATOSIS [None]
  - HYPERTENSION [None]
  - OBESITY [None]
  - RECTAL HAEMORRHAGE [None]
  - RENAL FAILURE [None]
  - VISION BLURRED [None]
  - WEIGHT DECREASED [None]
